FAERS Safety Report 9030730 (Version 3)
Quarter: 2013Q2

REPORT INFORMATION
  Report Type: Report from Study
  Country: CA (occurrence: CA)
  Receive Date: 20130123
  Receipt Date: 20130523
  Transmission Date: 20140414
  Serious: Yes (Other)
  Sender: FDA-Public Use
  Company Number: CA-ROCHE-1144068

PATIENT
  Age: 64 Year
  Sex: Female
  Weight: 90 kg

DRUGS (6)
  1. ACTEMRA [Suspect]
     Indication: RHEUMATOID ARTHRITIS
     Route: 042
     Dates: start: 20120907
  2. ACTEMRA [Suspect]
     Route: 042
     Dates: start: 20121005
  3. ACTEMRA [Suspect]
     Route: 042
     Dates: start: 20121212
  4. ARAVA [Concomitant]
  5. TIAZAC [Concomitant]
  6. IBUPROFEN [Concomitant]

REACTIONS (4)
  - Hernia [Not Recovered/Not Resolved]
  - Weight increased [Not Recovered/Not Resolved]
  - Oropharyngeal pain [Not Recovered/Not Resolved]
  - Rash [Not Recovered/Not Resolved]
